FAERS Safety Report 10497495 (Version 1)
Quarter: 2014Q4

REPORT INFORMATION
  Report Type: Spontaneous
  Country: JP (occurrence: None)
  Receive Date: 20141002
  Receipt Date: 20141002
  Transmission Date: 20150528
  Serious: Yes (Other)
  Sender: FDA-Public Use
  Company Number: INT_00428_2014

PATIENT
  Age: 72 Year
  Sex: Male

DRUGS (3)
  1. CISPLATIN (CISPLATIN) (HQ SPECIALTY) [Suspect]
     Active Substance: CISPLATIN
     Indication: SMALL CELL LUNG CANCER
     Dosage: ON DAYS 1-3 OF A 28 DAY CYCLE AT LEAST 4 CYCLES
  2. ETOPOSIDE (ETOPOSIDE) [Suspect]
     Active Substance: ETOPOSIDE
     Indication: SMALL CELL LUNG CANCER
  3. HYPERFRACTINATED THORACIC RADIOTHERAPY [Suspect]
     Active Substance: RADIATION THERAPY
     Indication: SMALL CELL LUNG CANCER
     Dosage: TOTAL DOS FOF 45 GY OVER 3 WEEKS

REACTIONS (3)
  - Leukopenia [None]
  - Febrile neutropenia [None]
  - Therapy responder [None]
